FAERS Safety Report 8083407-3 (Version None)
Quarter: 2012Q1

REPORT INFORMATION
  Report Type: 
  Country: None (occurrence: None)
  Receive Date: 20120127
  Receipt Date: 20110202
  Transmission Date: 20120608
  Serious: No
  Sender: FDA-Public Use
  Company Number: US-ABBOTT-11P-163-0702876-00

PATIENT
  Sex: Male
  Weight: 74.91 kg

DRUGS (3)
  1. GEMFIBROZIL [Concomitant]
     Indication: BLOOD TRIGLYCERIDES INCREASED
  2. PEROXITINE [Concomitant]
     Indication: DEPRESSION
  3. HUMIRA [Suspect]
     Indication: PSORIASIS
     Dates: start: 20110101

REACTIONS (2)
  - LACERATION [None]
  - SKIN HAEMORRHAGE [None]
